FAERS Safety Report 15550831 (Version 5)
Quarter: 2019Q1

REPORT INFORMATION
  Report Type: Report from Study
  Country: US (occurrence: US)
  Receive Date: 20181025
  Receipt Date: 20190110
  Transmission Date: 20190417
  Serious: Yes (Death, Hospitalization, Other)
  Sender: FDA-Public Use
  Company Number: US-GILEAD-2018-0366045

PATIENT
  Age: 72 Year
  Sex: Female
  Weight: 62.13 kg

DRUGS (4)
  1. ADCIRCA [Concomitant]
     Active Substance: TADALAFIL
  2. ELIQUIS [Concomitant]
     Active Substance: APIXABAN
  3. VELETRI [Concomitant]
     Active Substance: EPOPROSTENOL
  4. AMBRISENTAN [Suspect]
     Active Substance: AMBRISENTAN
     Indication: PULMONARY ARTERIAL HYPERTENSION
     Dosage: 10 MG, QD
     Route: 065
     Dates: start: 20140606

REACTIONS (12)
  - Dyspnoea exertional [Not Recovered/Not Resolved]
  - Gastrointestinal haemorrhage [Unknown]
  - Regurgitation [Not Recovered/Not Resolved]
  - Gastric ulcer [Not Recovered/Not Resolved]
  - Weight decreased [Not Recovered/Not Resolved]
  - Cardiac failure [Unknown]
  - Diarrhoea [Not Recovered/Not Resolved]
  - Vomiting [Not Recovered/Not Resolved]
  - Fluid retention [Unknown]
  - Gastric disorder [Not Recovered/Not Resolved]
  - Dyspnoea [Unknown]
  - Death [Fatal]

NARRATIVE: CASE EVENT DATE: 20181125
